FAERS Safety Report 14015224 (Version 1)
Quarter: 2017Q3

REPORT INFORMATION
  Report Type: Spontaneous
  Country: US (occurrence: US)
  Receive Date: 20170927
  Receipt Date: 20170927
  Transmission Date: 20171128
  Serious: No
  Sender: FDA-Public Use
  Company Number: US-CELGENEUS-USA-20170906356

PATIENT
  Age: 52 Year
  Sex: Female

DRUGS (3)
  1. OTEZLA [Suspect]
     Active Substance: APREMILAST
     Indication: OFF LABEL USE
     Dosage: 40 MILLIGRAM
     Route: 048
     Dates: start: 201709
  2. OTEZLA [Suspect]
     Active Substance: APREMILAST
     Indication: ANKYLOSING SPONDYLITIS
     Dosage: 20 MILLIGRAM
     Route: 048
     Dates: start: 20170912
  3. OTEZLA [Suspect]
     Active Substance: APREMILAST
     Dosage: 60 MILLIGRAM
     Route: 048
     Dates: start: 201709

REACTIONS (3)
  - Diarrhoea [Unknown]
  - Ankylosing spondylitis [Unknown]
  - Nasal ulcer [Unknown]

NARRATIVE: CASE EVENT DATE: 20170919
